FAERS Safety Report 25494132 (Version 1)
Quarter: 2025Q2

REPORT INFORMATION
  Report Type: Spontaneous
  Country: US (occurrence: US)
  Receive Date: 20250630
  Receipt Date: 20250630
  Transmission Date: 20250717
  Serious: Yes (Hospitalization)
  Sender: SANOFI AVENTIS
  Company Number: US-SA-2025SA183744

PATIENT
  Age: 79 Year
  Sex: Male

DRUGS (1)
  1. DUPIXENT [Suspect]
     Active Substance: DUPILUMAB
     Indication: Eczema
     Dosage: 300 MG, QOW
     Route: 058
     Dates: start: 20250429, end: 2025

REACTIONS (9)
  - Mobility decreased [Unknown]
  - Electrolyte depletion [Unknown]
  - Mineral deficiency [Unknown]
  - Diarrhoea [Unknown]
  - Asthenia [Unknown]
  - Balance disorder [Unknown]
  - Injection site hypoaesthesia [Unknown]
  - Injection site pain [Unknown]
  - Incorrect dose administered [Unknown]

NARRATIVE: CASE EVENT DATE: 20250101
